FAERS Safety Report 8906627 (Version 1)
Quarter: 2012Q4

REPORT INFORMATION
  Report Type: 
  Country: US (occurrence: US)
  Receive Date: 20121114
  Receipt Date: 20121114
  Transmission Date: 20130627
  Serious: Yes (Hospitalization)
  Sender: FDA-Public Use
  Company Number: US-OTSUKA-US-2012-11640

PATIENT
  Age: 56 Year
  Sex: Female
  Weight: 53.3 kg

DRUGS (7)
  1. SAMSCA [Suspect]
     Indication: BLOOD SODIUM DECREASED
     Dosage: 15 Mg milligram(s), single
     Route: 048
     Dates: start: 20121021, end: 20121021
  2. CHEMOTHERAPY [Suspect]
  3. LISINOPRIL [Concomitant]
  4. ARMOUR THYROID [Concomitant]
  5. ZOFRAN [Concomitant]
  6. COMPAZINE [Concomitant]
  7. REGLAN [Concomitant]

REACTIONS (1)
  - Blood pressure decreased [Recovered/Resolved]
